FAERS Safety Report 7231015-6 (Version None)
Quarter: 2011Q1

REPORT INFORMATION
  Report Type: 
  Country: None (occurrence: None)
  Receive Date: 20110118
  Receipt Date: 20110110
  Transmission Date: 20110831
  Serious: No
  Sender: FDA-Public Use
  Company Number: GB-ROCHE-752632

PATIENT
  Sex: Female

DRUGS (2)
  1. ISOTRETINOIN [Suspect]
     Dosage: TOOK ONE TABLET
     Route: 065
     Dates: start: 20101213, end: 20101213
  2. ISOTRETINOIN [Suspect]
     Route: 065
     Dates: end: 20101115

REACTIONS (2)
  - NO ADVERSE EVENT [None]
  - PREGNANCY [None]
